FAERS Safety Report 7128387-X (Version None)
Quarter: 2010Q4

REPORT INFORMATION
  Report Type: 
  Country: None (occurrence: None)
  Receive Date: 20101115
  Receipt Date: 20101028
  Transmission Date: 20110411
  Serious: Yes (Hospitalization)
  Sender: FDA-Public Use
  Company Number: 2010004257

PATIENT
  Age: 65 Year
  Sex: Male
  Weight: 47.2 kg

DRUGS (7)
  1. ERLOTINIB (ERLOTINIB) (TABLET) (ERLOTINIB) [Suspect]
     Indication: LUNG ADENOCARCINOMA
     Dosage: (150 MG, QD), ORAL; (100 MG, QD), ORAL
     Route: 048
     Dates: start: 20090502, end: 20090611
  2. ERLOTINIB (ERLOTINIB) (TABLET) (ERLOTINIB) [Suspect]
     Indication: LUNG ADENOCARCINOMA
     Dosage: (150 MG, QD), ORAL; (100 MG, QD), ORAL
     Route: 048
     Dates: start: 20090713, end: 20090906
  3. NAPROXEN SODIUM [Suspect]
     Indication: PRODUCT USED FOR UNKNOWN INDICATION
     Dosage: (600 MG, QD), ORAL
     Route: 048
     Dates: end: 20090611
  4. RABEPRAZOLE SODIUM [Concomitant]
  5. CODEINE PHOSPHATE (CODEINE PHOSPHATE) [Concomitant]
  6. MAGNESIUM OXIDE (MAGNESIUM OXIDE) [Concomitant]
  7. NOVAMIN (PROCHLORPERAZINE) [Concomitant]

REACTIONS (4)
  - ANAEMIA [None]
  - GASTRIC ULCER HAEMORRHAGE [None]
  - LUNG ADENOCARCINOMA [None]
  - MALIGNANT NEOPLASM PROGRESSION [None]
